FAERS Safety Report 15799026 (Version 1)
Quarter: 2019Q1

REPORT INFORMATION
  Report Type: Spontaneous
  Country: US (occurrence: US)
  Receive Date: 20190108
  Receipt Date: 20190108
  Transmission Date: 20190417
  Serious: Yes (Hospitalization)
  Sender: FDA-Public Use
  Company Number: None

PATIENT
  Age: 59 Year
  Sex: Female

DRUGS (10)
  1. TOPIRAMATE 25 MG TABLETS [Concomitant]
     Active Substance: TOPIRAMATE
  2. ESCITALOPRAM 10 MG TABLETS [Concomitant]
  3. PANTOPRAZOLE 40 MG TABLETS [Concomitant]
     Active Substance: PANTOPRAZOLE SODIUM
  4. METFORMIN [Concomitant]
     Active Substance: METFORMIN HYDROCHLORIDE
  5. FUROSEMIDE 20 MG TABLETS [Concomitant]
  6. ATENOLOL 25 MG TABLETS [Concomitant]
  7. GABAPENTIN 300 MG CAPSULES [Concomitant]
     Active Substance: GABAPENTIN
  8. METHOCARBAMOL 500 MG TABLETS [Concomitant]
  9. XARELTO 20 MG TABLETS [Concomitant]
  10. XELJANZ XR [Suspect]
     Active Substance: TOFACITINIB CITRATE

REACTIONS (1)
  - Pulmonary embolism [None]

NARRATIVE: CASE EVENT DATE: 20181213
